FAERS Safety Report 19980965 (Version 1)
Quarter: 2021Q4

REPORT INFORMATION
  Report Type: Spontaneous
  Country: IE (occurrence: IE)
  Receive Date: 20211021
  Receipt Date: 20211021
  Transmission Date: 20220303
  Serious: Yes (Other)
  Sender: FDA-Public Use
  Company Number: IE-PFIZER INC-202101358201

PATIENT
  Age: 68 Year
  Sex: Female

DRUGS (1)
  1. BOSULIF [Suspect]
     Active Substance: BOSUTINIB MONOHYDRATE
     Indication: Chronic myeloid leukaemia
     Dosage: 500 MG, 1X/DAY

REACTIONS (7)
  - Neutropenia [Unknown]
  - Second primary malignancy [Unknown]
  - Acute lymphocytic leukaemia [Unknown]
  - Rash [Unknown]
  - Blast cells present [Unknown]
  - Malaise [Unknown]
  - Liver function test decreased [Unknown]
